FAERS Safety Report 7673362-X (Version None)
Quarter: 2011Q3

REPORT INFORMATION
  Report Type: 
  Country: None (occurrence: None)
  Receive Date: 20110810
  Receipt Date: 20110801
  Transmission Date: 20111222
  Serious: Yes (Hospitalization, Other)
  Sender: FDA-Public Use
  Company Number: US-JNJFOC-20090608511

PATIENT
  Sex: Male
  Weight: 47.6 kg

DRUGS (8)
  1. CIPROFLOXACIN HCL [Concomitant]
  2. OMEPRAZOLE [Concomitant]
  3. ASPIRIN [Concomitant]
     Route: 048
  4. PREDNISONE [Concomitant]
  5. REMICADE [Suspect]
     Indication: CROHN'S DISEASE
     Route: 042
     Dates: start: 20090221
  6. PROTONIX [Concomitant]
  7. MERCAPTOPURINE [Concomitant]
  8. REMICADE [Suspect]
     Route: 042
     Dates: start: 20090610

REACTIONS (1)
  - CROHN'S DISEASE [None]
